FAERS Safety Report 7876081-X (Version None)
Quarter: 2011Q4

REPORT INFORMATION
  Report Type: 
  Country: None (occurrence: None)
  Receive Date: 20111031
  Receipt Date: 20111026
  Transmission Date: 20120403
  Serious: Yes (Life-Threatening)
  Sender: FDA-Public Use
  Company Number: AU-ROCHE-1007238

PATIENT
  Age: 59 Year
  Sex: Male

DRUGS (2)
  1. OXALIPLATIN [Suspect]
     Indication: PRODUCT USED FOR UNKNOWN INDICATION
     Route: 042
     Dates: start: 20110822, end: 20110822
  2. XELODA [Suspect]
     Indication: PRODUCT USED FOR UNKNOWN INDICATION
     Route: 048
     Dates: start: 20110822, end: 20110905

REACTIONS (4)
  - SYNCOPE [None]
  - BLOOD CREATINE PHOSPHOKINASE INCREASED [None]
  - ACUTE PRERENAL FAILURE [None]
  - DEHYDRATION [None]
